FAERS Safety Report 10056150 (Version 1)
Quarter: 2014Q2

REPORT INFORMATION
  Report Type: Spontaneous
  Country: US (occurrence: US)
  Receive Date: 20140403
  Receipt Date: 20140403
  Transmission Date: 20141212
  Serious: No
  Sender: FDA-Public Use
  Company Number: US-PFIZER INC-2014093356

PATIENT
  Age: 61 Year
  Sex: Male

DRUGS (11)
  1. LOPID [Suspect]
     Dosage: UNK
  2. OXYCODONE HYDROCHLORIDE [Suspect]
     Dosage: UNK
  3. METFORMIN HCL [Suspect]
     Dosage: UNK
  4. DILAUDID [Suspect]
     Dosage: UNK
  5. FENTANYL [Suspect]
     Dosage: UNK
  6. NUCYNTA [Suspect]
     Dosage: UNK
  7. NIASPAN [Suspect]
     Dosage: UNK
  8. ROZEREM [Suspect]
     Dosage: UNK
  9. HYDROCODONE [Suspect]
     Dosage: UNK
  10. SOMA [Suspect]
     Dosage: UNK
  11. TALWIN [Suspect]
     Dosage: UNK

REACTIONS (1)
  - Drug hypersensitivity [Unknown]
